FAERS Safety Report 6330480-6 (Version None)
Quarter: 2009Q3

REPORT INFORMATION
  Report Type: 
  Country: None (occurrence: None)
  Receive Date: 20090827
  Receipt Date: 20081212
  Transmission Date: 20100115
  Serious: No
  Sender: FDA-Public Use
  Company Number: A0760353A

PATIENT
  Age: 29 Year
  Sex: Female

DRUGS (3)
  1. VALTREX [Suspect]
     Indication: GENITAL HERPES
     Dosage: 500MG TWICE PER DAY
     Route: 048
  2. ACYCLOVIR [Suspect]
     Indication: GENITAL HERPES
     Route: 048
  3. IUD [Concomitant]
     Dates: start: 20081128

REACTIONS (2)
  - BREAST FEEDING [None]
  - DRUG INEFFECTIVE [None]
